FAERS Safety Report 24638917 (Version 3)
Quarter: 2025Q3

REPORT INFORMATION
  Report Type: Spontaneous
  Country: US (occurrence: US)
  Receive Date: 20241119
  Receipt Date: 20250803
  Transmission Date: 20251020
  Serious: No
  Sender: SANOFI AVENTIS
  Company Number: US-SA-2024SA329431

PATIENT
  Age: 6 Year
  Sex: Female
  Weight: 42.7 kg

DRUGS (1)
  1. FABRAZYME [Suspect]
     Active Substance: AGALSIDASE BETA
     Indication: Fabry^s disease
     Dosage: 40 MG, QOW
     Route: 042
     Dates: start: 201908

REACTIONS (1)
  - Weight increased [Not Recovered/Not Resolved]
